FAERS Safety Report 18431473 (Version 1)
Quarter: 2020Q4

REPORT INFORMATION
  Report Type: Spontaneous
  Country: CN (occurrence: CN)
  Receive Date: 20201027
  Receipt Date: 20201027
  Transmission Date: 20210114
  Serious: Yes (Other)
  Sender: FDA-Public Use
  Company Number: CN-PFIZER INC-2020413356

PATIENT
  Age: 50 Year
  Sex: Male
  Weight: 62 kg

DRUGS (2)
  1. CELECOXIB. [Suspect]
     Active Substance: CELECOXIB
     Indication: EXOSTOSIS
     Dosage: 1 DF, 1X/DAY
     Route: 048
     Dates: start: 20201007, end: 20201015
  2. GU CI [Suspect]
     Active Substance: HERBALS
     Indication: EXOSTOSIS
     Dosage: 3 DF, 3X/DAY
     Route: 048
     Dates: start: 20201007, end: 20201015

REACTIONS (3)
  - Vomiting [Recovered/Resolved]
  - Nausea [Recovered/Resolved]
  - Abdominal distension [Recovered/Resolved]

NARRATIVE: CASE EVENT DATE: 20201015
